FAERS Safety Report 7806365-2 (Version None)
Quarter: 2011Q4

REPORT INFORMATION
  Report Type: 
  Country: None (occurrence: None)
  Receive Date: 20111011
  Receipt Date: 20111006
  Transmission Date: 20120403
  Serious: Yes (Death)
  Sender: FDA-Public Use
  Company Number: SA-SHIRE-ALL1-2011-02822

PATIENT
  Age: 14 Year
  Sex: Male
  Weight: 30 kg

DRUGS (1)
  1. IDURSULFASE [Suspect]
     Indication: MUCOPOLYSACCHARIDOSIS II
     Dosage: 0.50 MG, 1X/WEEK
     Route: 041
     Dates: start: 20080101, end: 20110101

REACTIONS (1)
  - DEATH [None]
